FAERS Safety Report 4932814-3 (Version None)
Quarter: 2006Q1

REPORT INFORMATION
  Report Type: 
  Country: None (occurrence: None)
  Receive Date: 20060302
  Receipt Date: 20060302
  Transmission Date: 20060701
  Serious: Yes (Other)
  Sender: FDA-Public Use
  Company Number: None

PATIENT
  Sex: Female
  Weight: 77.5651 kg

DRUGS (2)
  1. ABRAXANE [Suspect]
     Indication: BREAST CANCER METASTATIC
     Dosage: 486 MG IV Q3W
     Route: 042
     Dates: start: 20060111
  2. ABRAXANE [Suspect]
     Indication: BREAST CANCER METASTATIC
     Dosage: 486 MG IV Q3W
     Route: 042
     Dates: start: 20060201

REACTIONS (3)
  - RASH ERYTHEMATOUS [None]
  - RASH MACULAR [None]
  - SKIN EXFOLIATION [None]
